FAERS Safety Report 11356916 (Version 1)
Quarter: 2015Q3

REPORT INFORMATION
  Report Type: Spontaneous
  Country: US (occurrence: US)
  Receive Date: 20150803
  Receipt Date: 20150803
  Transmission Date: 20151125
  Serious: No
  Sender: FDA-Public Use
  Company Number: US-ELI_LILLY_AND_COMPANY-US201303004454

PATIENT
  Age: 46 Year
  Sex: Female

DRUGS (2)
  1. ZYPREXA [Suspect]
     Active Substance: OLANZAPINE
     Dosage: 5 MG, EACH EVENING
  2. ZYPREXA [Suspect]
     Active Substance: OLANZAPINE
     Dosage: 15 MG, QD
     Dates: start: 2003

REACTIONS (4)
  - Bronchitis [Unknown]
  - Somnolence [Unknown]
  - Influenza [Unknown]
  - Weight decreased [Unknown]

NARRATIVE: CASE EVENT DATE: 201301
